FAERS Safety Report 20263792 (Version 1)
Quarter: 2021Q4

REPORT INFORMATION
  Report Type: Spontaneous
  Country: JP (occurrence: JP)
  Receive Date: 20211231
  Receipt Date: 20211231
  Transmission Date: 20220303
  Serious: Yes (Death, Life-Threatening, Hospitalization, Other)
  Sender: FDA-Public Use
  Company Number: JP-MACLEODS PHARMACEUTICALS US LTD-MAC2021033918

PATIENT

DRUGS (14)
  1. AMLODIPINE [Suspect]
     Active Substance: AMLODIPINE BESYLATE
     Indication: Thrombotic microangiopathy
     Dosage: 5 MILLIGRAM
     Route: 042
     Dates: start: 202005
  2. AMLODIPINE [Suspect]
     Active Substance: AMLODIPINE BESYLATE
     Dosage: 2.5 MILLIGRAM
     Route: 065
     Dates: start: 202005
  3. PREDNISOLONE [Suspect]
     Active Substance: PREDNISOLONE
     Indication: Thrombotic microangiopathy
     Dosage: 20 MILLIGRAM
     Route: 042
     Dates: start: 202005
  4. PREDNISOLONE [Suspect]
     Active Substance: PREDNISOLONE
     Dosage: 30 MILLIGRAM
     Route: 042
     Dates: start: 202005
  5. PREDNISOLONE [Suspect]
     Active Substance: PREDNISOLONE
     Dosage: 10 MILLIGRAM
     Route: 042
     Dates: start: 202005
  6. PREDNISOLONE [Suspect]
     Active Substance: PREDNISOLONE
     Dosage: 10 MILLIGRAM
     Route: 042
     Dates: start: 202005
  7. PREDNISOLONE [Suspect]
     Active Substance: PREDNISOLONE
     Dosage: 20 MILLIGRAM
     Route: 042
     Dates: start: 202005
  8. PREDNISOLONE [Suspect]
     Active Substance: PREDNISOLONE
     Dosage: 30 MILLIGRAM
     Route: 042
     Dates: start: 202005
  9. FUROSEMIDE [Suspect]
     Active Substance: FUROSEMIDE
     Indication: Thrombotic microangiopathy
     Dosage: 60 MILLIGRAM
     Route: 065
     Dates: start: 202005
  10. FUROSEMIDE [Suspect]
     Active Substance: FUROSEMIDE
     Dosage: 60 MILLIGRAM
     Route: 042
     Dates: start: 202005
  11. FUROSEMIDE [Suspect]
     Active Substance: FUROSEMIDE
     Dosage: 20 MILLIGRAM
     Route: 042
     Dates: start: 202005
  12. FUROSEMIDE [Suspect]
     Active Substance: FUROSEMIDE
     Dosage: 40 MILLIGRAM
     Route: 042
     Dates: start: 202005
  13. FUROSEMIDE [Suspect]
     Active Substance: FUROSEMIDE
     Dosage: 80 MILLIGRAM
     Route: 042
     Dates: start: 202005
  14. AZOSEMIDE [Suspect]
     Active Substance: AZOSEMIDE
     Indication: Thrombotic microangiopathy
     Dosage: 30 MILLIGRAM
     Route: 065
     Dates: start: 202005

REACTIONS (2)
  - Death [Fatal]
  - Drug ineffective [Unknown]

NARRATIVE: CASE EVENT DATE: 20200501
